FAERS Safety Report 8871814 (Version 1)
Quarter: 2012Q4

REPORT INFORMATION
  Report Type: 
  Country: ZA (occurrence: ZA)
  Receive Date: 20121030
  Receipt Date: 20121030
  Transmission Date: 20130627
  Serious: Yes (Other)
  Sender: FDA-Public Use
  Company Number: ZA-UCBSA-069512

PATIENT
  Age: 6 Year
  Sex: Female

DRUGS (1)
  1. KEPPRA [Suspect]
     Route: 048

REACTIONS (5)
  - Urinary retention [Unknown]
  - Epistaxis [Unknown]
  - Nausea [Unknown]
  - Weight increased [Unknown]
  - Speech disorder [Unknown]
